FAERS Safety Report 17166124 (Version 1)
Quarter: 2019Q4

REPORT INFORMATION
  Report Type: Spontaneous
  Country: US (occurrence: US)
  Receive Date: 20191217
  Receipt Date: 20191217
  Transmission Date: 20200122
  Serious: No
  Sender: FDA-Public Use
  Company Number: US-SA-2019SA346478

PATIENT
  Sex: Female

DRUGS (2)
  1. DUPIXENT [Suspect]
     Active Substance: DUPILUMAB
     Indication: PRURITUS
     Dosage: UNK UNK, QOW
     Dates: start: 2019, end: 20190705
  2. DUPIXENT [Suspect]
     Active Substance: DUPILUMAB
     Indication: PEMPHIGOID
     Dosage: UNK UNK, 1X
     Dates: start: 20190510, end: 20190510

REACTIONS (2)
  - Drug ineffective for unapproved indication [Unknown]
  - Product dose omission [Unknown]

NARRATIVE: CASE EVENT DATE: 2019
